FAERS Safety Report 7075091-2 (Version None)
Quarter: 2010Q4

REPORT INFORMATION
  Report Type: 
  Country: None (occurrence: None)
  Receive Date: 20101029
  Receipt Date: 20100412
  Transmission Date: 20110411
  Serious: No
  Sender: FDA-Public Use
  Company Number: US-WYE-H14653110

PATIENT
  Age: 70 Year
  Sex: Female
  Weight: 45.4 kg

DRUGS (3)
  1. ADVIL PM [Suspect]
     Indication: INSOMNIA
     Dosage: 1 CAPLET X 1
     Route: 048
     Dates: start: 20100410, end: 20100410
  2. TRAZODONE [Concomitant]
  3. PROZAC [Concomitant]

REACTIONS (8)
  - ASTHENIA [None]
  - DIARRHOEA [None]
  - DRY MOUTH [None]
  - DYSPEPSIA [None]
  - MALAISE [None]
  - PARAESTHESIA ORAL [None]
  - THROAT IRRITATION [None]
  - VOMITING [None]
